FAERS Safety Report 4469024-2 (Version None)
Quarter: 2004Q4

REPORT INFORMATION
  Report Type: 
  Country: None (occurrence: None)
  Receive Date: 20041005
  Receipt Date: 20040928
  Transmission Date: 20050328
  Serious: Yes (Hospitalization)
  Sender: FDA-Public Use
  Company Number: TOR 2004-0024

PATIENT
  Age: 52 Year
  Sex: Female

DRUGS (1)
  1. FARESTON [Suspect]
     Indication: BREAST CANCER
     Dosage: 40 MG  ORAL
     Route: 048
     Dates: start: 20040618, end: 20040828

REACTIONS (7)
  - DISCOMFORT [None]
  - DYSPHAGIA [None]
  - EAR DISCOMFORT [None]
  - FATIGUE [None]
  - HEPATIC FUNCTION ABNORMAL [None]
  - NASOPHARYNGEAL DISORDER [None]
  - RASH GENERALISED [None]
